FAERS Safety Report 12173564 (Version 1)
Quarter: 2016Q1

REPORT INFORMATION
  Report Type: Spontaneous
  Country: US (occurrence: None)
  Receive Date: 20160311
  Receipt Date: 20160311
  Transmission Date: 20160526
  Serious: Yes (Death, Life-Threatening, Hospitalization)
  Sender: FDA-Public Use
  Company Number: None

PATIENT
  Age: 83 Year
  Sex: Female
  Weight: 60.33 kg

DRUGS (8)
  1. VITAMIN D [Concomitant]
     Active Substance: CHOLECALCIFEROL
  2. SIMVASTATIN. [Concomitant]
     Active Substance: SIMVASTATIN
  3. SOTALOL. [Concomitant]
     Active Substance: SOTALOL
  4. ELIQUIS [Concomitant]
     Active Substance: APIXABAN
  5. DONEPEZIL. [Concomitant]
     Active Substance: DONEPEZIL
  6. LISINOPRIL. [Concomitant]
     Active Substance: LISINOPRIL
  7. APIXABAN [Suspect]
     Active Substance: APIXABAN
     Indication: ATRIAL FIBRILLATION
     Route: 048
     Dates: start: 20151002, end: 20151004
  8. LEVOTHYROXINE. [Concomitant]
     Active Substance: LEVOTHYROXINE

REACTIONS (2)
  - Haemorrhagic stroke [None]
  - Haemorrhage intracranial [None]

NARRATIVE: CASE EVENT DATE: 20151005
